FAERS Safety Report 5323950-0 (Version None)
Quarter: 2007Q2

REPORT INFORMATION
  Report Type: 
  Country: None (occurrence: None)
  Receive Date: 20070220
  Receipt Date: 20070108
  Transmission Date: 20071010
  Serious: No
  Sender: FDA-Public Use
  Company Number: WAES 0701USA00931

PATIENT
  Age: 61 Year
  Sex: Female

DRUGS (4)
  1. JANUVIA [Suspect]
     Indication: DIABETES MELLITUS
     Dosage: 100MG;DAILY;PO
     Route: 048
     Dates: start: 20070101, end: 20070103
  2. AMARYL [Concomitant]
  3. METFORMIN HCL [Concomitant]
  4. BYETTA [Suspect]

REACTIONS (3)
  - DRUG INEFFECTIVE [None]
  - NAUSEA [None]
  - PHARYNGOLARYNGEAL PAIN [None]
